FAERS Safety Report 4357055-2 (Version None)
Quarter: 2004Q2

REPORT INFORMATION
  Report Type: 
  Country: None (occurrence: None)
  Receive Date: 20040512
  Receipt Date: 20040413
  Transmission Date: 20050107
  Serious: Yes (Death)
  Sender: FDA-Public Use
  Company Number: DE-GLAXOSMITHKLINE-D0043597A

PATIENT
  Age: 79 Year
  Sex: Male
  Weight: 60 kg

DRUGS (4)
  1. VIANI [Suspect]
     Dosage: 150UG UNKNOWN
     Route: 055
     Dates: start: 20010401, end: 20010901
  2. ALBUTEROL [Concomitant]
     Route: 055
  3. THEOPHYLLINE [Concomitant]
     Dosage: 300MG PER DAY
     Route: 048
  4. ASPIRIN [Concomitant]
     Dosage: 100MG UNKNOWN
     Route: 048

REACTIONS (1)
  - CIRCULATORY COLLAPSE [None]
